FAERS Safety Report 5059098-2 (Version None)
Quarter: 2006Q3

REPORT INFORMATION
  Report Type: 
  Country: None (occurrence: None)
  Receive Date: 20060718
  Receipt Date: 20060705
  Transmission Date: 20061208
  Serious: Yes (Hospitalization, Other)
  Sender: FDA-Public Use
  Company Number: 2006072801

PATIENT
  Age: 68 Year
  Sex: Male
  Weight: 71.2147 kg

DRUGS (2)
  1. SUTENT [Suspect]
     Indication: RENAL CELL CARCINOMA STAGE UNSPECIFIED
     Dosage: (50 MG, CYCLIC), ORAL
     Route: 048
     Dates: start: 20060327, end: 20060602
  2. GLYNASE [Suspect]

REACTIONS (1)
  - HAEMORRHAGIC STROKE [None]
